FAERS Safety Report 7370081-4 (Version None)
Quarter: 2011Q1

REPORT INFORMATION
  Report Type: 
  Country: None (occurrence: None)
  Receive Date: 20110323
  Receipt Date: 20110310
  Transmission Date: 20110831
  Serious: Yes (Hospitalization, Other)
  Sender: FDA-Public Use
  Company Number: PHHY2011BR20003

PATIENT
  Sex: Female

DRUGS (5)
  1. SOMALGIN [Concomitant]
     Dosage: 100 MG, QD
     Route: 048
  2. ATENOLOL [Concomitant]
     Dosage: 50 MG, ONE TABLET
     Route: 048
  3. DIOVAN AMLO [Suspect]
     Indication: HYPERTENSION
     Dosage: 160/5 MG, ONE TABLET DAILY
     Route: 048
  4. HYGROTON [Concomitant]
     Dosage: ONE TABLET, DAILY
  5. CHEMOTHERAPEUTICS NOS [Concomitant]
     Dosage: UNK
     Dates: start: 20091001, end: 20100601

REACTIONS (1)
  - COLON CANCER [None]
